FAERS Safety Report 10952045 (Version 1)
Quarter: 2015Q1

REPORT INFORMATION
  Report Type: Spontaneous
  Country: US (occurrence: None)
  Receive Date: 20150324
  Receipt Date: 20150324
  Transmission Date: 20150721
  Serious: Yes (Hospitalization)
  Sender: FDA-Public Use
  Company Number: None

PATIENT
  Age: 48 Year
  Sex: Male
  Weight: 74.84 kg

DRUGS (1)
  1. FLONASE [Suspect]
     Active Substance: FLUTICASONE PROPIONATE
     Indication: EAR DISCOMFORT
     Dosage: 2 SPRAY EACH NOSTRIL, ONCE DAILY, INHALATION
     Route: 055

REACTIONS (2)
  - Blood pressure increased [None]
  - Epistaxis [None]

NARRATIVE: CASE EVENT DATE: 20150321
